FAERS Safety Report 13939923 (Version 2)
Quarter: 2017Q4

REPORT INFORMATION
  Report Type: Spontaneous
  Country: US (occurrence: US)
  Receive Date: 20170906
  Receipt Date: 20171003
  Transmission Date: 20180320
  Serious: Yes (Other)
  Sender: FDA-Public Use
  Company Number: US-WEST-WARD PHARMACEUTICALS CORP.-US-H14001-17-03246

PATIENT
  Age: 47 Year
  Sex: Male

DRUGS (2)
  1. PENTOSTATIN. [Suspect]
     Active Substance: PENTOSTATIN
     Indication: HEPATOSPLENIC T-CELL LYMPHOMA
     Route: 065
  2. CYCLOPHOSPHAMIDE. [Suspect]
     Active Substance: CYCLOPHOSPHAMIDE
     Indication: HEPATOSPLENIC T-CELL LYMPHOMA
     Route: 065

REACTIONS (5)
  - Glomerulonephritis membranoproliferative [Not Recovered/Not Resolved]
  - Generalised oedema [Unknown]
  - Respiratory distress [Unknown]
  - Oliguria [Unknown]
  - Renal failure [Not Recovered/Not Resolved]
